FAERS Safety Report 6521354-6 (Version None)
Quarter: 2009Q4

REPORT INFORMATION
  Report Type: 
  Country: None (occurrence: None)
  Receive Date: 20091230
  Receipt Date: 20091218
  Transmission Date: 20100525
  Serious: Yes (Other)
  Sender: FDA-Public Use
  Company Number: US-PFIZER INC-2007000972

PATIENT
  Sex: Male

DRUGS (5)
  1. VIAGRA [Suspect]
     Indication: ERECTILE DYSFUNCTION
     Route: 048
     Dates: start: 20050301
  2. VICODIN [Concomitant]
     Dosage: 500MG/5MG, AS NEEDED
  3. LISINOPRIL [Concomitant]
     Dosage: 10 MG, 2X/DAY
     Route: 048
  4. DIGITEK [Concomitant]
     Dosage: 0.25 MG, 1X/DAY
  5. METOPROLOL [Concomitant]
     Dosage: 25 MG, 2X/DAY
     Route: 048

REACTIONS (2)
  - BLINDNESS [None]
  - OPTIC ISCHAEMIC NEUROPATHY [None]
